FAERS Safety Report 8419605-6 (Version None)
Quarter: 2012Q2

REPORT INFORMATION
  Report Type: 
  Country: None (occurrence: None)
  Receive Date: 20120607
  Receipt Date: 20120601
  Transmission Date: 20120825
  Serious: Yes (Other)
  Sender: FDA-Public Use
  Company Number: PT-GILEAD-2012-0056138

PATIENT
  Age: 50 Year
  Sex: Male

DRUGS (3)
  1. PROTEASE INHIBITORS [Concomitant]
  2. VIREAD [Suspect]
     Indication: HIV INFECTION
  3. LAMIVUDINE (EPIVIR HBV) [Concomitant]

REACTIONS (1)
  - OSTEONECROSIS [None]
